FAERS Safety Report 5384426-8 (Version None)
Quarter: 2007Q3

REPORT INFORMATION
  Report Type: 
  Country: None (occurrence: None)
  Receive Date: 20070711
  Receipt Date: 20070702
  Transmission Date: 20080115
  Serious: Yes (Hospitalization, Other)
  Sender: FDA-Public Use
  Company Number: US-ASTRAZENECA-2007UW15784

PATIENT
  Age: 18268 Day
  Sex: Female
  Weight: 63.6 kg

DRUGS (2)
  1. SEROQUEL [Suspect]
     Indication: DEPRESSION
     Route: 048
     Dates: start: 20021001, end: 20070501
  2. SEROQUEL [Suspect]
     Route: 048

REACTIONS (2)
  - PANCREATITIS ACUTE [None]
  - PERICARDITIS [None]
